FAERS Safety Report 24043507 (Version 1)
Quarter: 2024Q3

REPORT INFORMATION
  Report Type: Spontaneous
  Country: DK (occurrence: None)
  Receive Date: 20240703
  Receipt Date: 20240703
  Transmission Date: 20241017
  Serious: Yes (Hospitalization, Other)
  Sender: ASTRAZENECA
  Company Number: 2024A148390

PATIENT
  Age: 70 Year
  Sex: Male

DRUGS (24)
  1. ACALABRUTINIB [Suspect]
     Active Substance: ACALABRUTINIB
     Indication: Chronic lymphocytic leukaemia
     Dosage: PAUSED FROM 13JAN2024 TO 22JAN2024
     Route: 048
     Dates: start: 20240103, end: 20240130
  2. ACALABRUTINIB [Suspect]
     Active Substance: ACALABRUTINIB
     Indication: Chronic lymphocytic leukaemia
     Route: 048
     Dates: start: 20230928, end: 20240102
  3. PREDNISOLONE [Concomitant]
     Active Substance: PREDNISOLONE
     Indication: Adrenocortical steroid therapy
     Dates: start: 20231010, end: 20231114
  4. PREDNISOLONE [Concomitant]
     Active Substance: PREDNISOLONE
     Indication: Adrenocortical steroid therapy
     Dates: start: 20231114, end: 20240102
  5. PREDNISOLONE [Concomitant]
     Active Substance: PREDNISOLONE
     Indication: Adrenocortical steroid therapy
     Dosage: UNKNOWN STRENGTH AND DOSE
     Dates: start: 20230824, end: 20231010
  6. PENICILLIN G [Concomitant]
     Active Substance: PENICILLIN G
     Indication: Infection
     Dosage: TIME INTERVAL: 0.25 D
     Dates: start: 20240113, end: 20240117
  7. PENICILLIN V [Concomitant]
     Active Substance: PENICILLIN V
     Indication: Oral infection
     Dosage: TIME INTERVAL: 0.25 D1MIU
     Dates: start: 20230923, end: 20231001
  8. GENTAMICIN [Concomitant]
     Active Substance: GENTAMICIN
     Indication: Sepsis
     Dates: start: 20240113, end: 20240116
  9. MOXIFLOXACIN [Concomitant]
     Active Substance: MOXIFLOXACIN
     Indication: Infection prophylaxis
     Dosage: STRENGTH: 400 MG
     Dates: start: 20230921, end: 20231114
  10. FOLIC ACID [Concomitant]
     Active Substance: FOLIC ACID
     Indication: Vitamin supplementation
     Dates: start: 20230919, end: 20240102
  11. TRACAFOUR [Concomitant]
     Indication: Haemorrhage prophylaxis
     Dosage: TIME INTERVAL: 0.33 D
     Dates: start: 20240221
  12. PIPERACILLIN AND TAZOBACTAM [Concomitant]
     Active Substance: PIPERACILLIN SODIUM\TAZOBACTAM SODIUM
     Indication: Product used for unknown indication
     Dosage: STRENGTH AND DOSE UNKNOWN
     Dates: start: 20240113, end: 20240113
  13. FILGRASTIM [Concomitant]
     Active Substance: FILGRASTIM
     Indication: Neutropenia
     Dosage: 60MEM 30MIU DAILY
     Dates: start: 20240116, end: 20240121
  14. ACICLODAN [Concomitant]
     Indication: Prophylaxis
     Dates: start: 20230823, end: 20240122
  15. ACICLODAN [Concomitant]
     Indication: Herpes virus infection
     Dates: start: 20230823, end: 20240122
  16. DEXAMETHASONE ACETATE [Concomitant]
     Active Substance: DEXAMETHASONE ACETATE
     Indication: Product used for unknown indication
     Dosage: STRENGTH AND DOSE UNKNOWN
     Dates: start: 20240117, end: 20240120
  17. MOXIFLOXACIN [Concomitant]
     Active Substance: MOXIFLOXACIN
     Indication: Infection prophylaxis
     Dates: start: 20240122
  18. VALACYCLOVIR HYDROCHLORIDE [Concomitant]
     Active Substance: VALACYCLOVIR HYDROCHLORIDE
     Indication: Herpes zoster
     Dates: start: 20240122
  19. VALACYCLOVIR HYDROCHLORIDE [Concomitant]
     Active Substance: VALACYCLOVIR HYDROCHLORIDE
     Indication: Prophylaxis
     Dates: start: 20240122
  20. ALENDRONAT [Concomitant]
     Active Substance: ALENDRONATE SODIUM
     Indication: Osteoporosis
     Dates: start: 20200504
  21. VENETOCLAX [Concomitant]
     Active Substance: VENETOCLAX
     Indication: Chronic lymphocytic leukaemia
     Dates: start: 20240131
  22. PANTOPRAZOLE SODIUM [Concomitant]
     Active Substance: PANTOPRAZOLE SODIUM
     Indication: Prophylaxis against gastrointestinal ulcer
     Dates: start: 20230823, end: 20240102
  23. PANTOPRAZOLE SODIUM [Concomitant]
     Active Substance: PANTOPRAZOLE SODIUM
     Indication: Prophylaxis against gastrointestinal ulcer
     Dates: start: 20240117, end: 20240120
  24. ATORVASTATIN [Concomitant]
     Active Substance: ATORVASTATIN
     Indication: Hypercholesterolaemia
     Dosage: START DATO UNKNOWN BUT AT LEAST SINCE 04OCT2022

REACTIONS (1)
  - Aplastic anaemia [Not Recovered/Not Resolved]
